FAERS Safety Report 4321163-2 (Version None)
Quarter: 2004Q1

REPORT INFORMATION
  Report Type: 
  Country: None (occurrence: None)
  Receive Date: 20040312
  Receipt Date: 20040203
  Transmission Date: 20041129
  Serious: Yes (Life-Threatening)
  Sender: FDA-Public Use
  Company Number: S04-USA-00531-01

PATIENT
  Age: 51 Year
  Sex: Female

DRUGS (1)
  1. LEXAPRO [Suspect]
     Dosage: 10 MG QD PO
     Route: 048

REACTIONS (1)
  - ANAPHYLACTIC REACTION [None]
